FAERS Safety Report 6598889-3 (Version None)
Quarter: 2010Q1

REPORT INFORMATION
  Report Type: 
  Country: None (occurrence: None)
  Receive Date: 20100224
  Receipt Date: 20090121
  Transmission Date: 20100710
  Serious: No
  Sender: FDA-Public Use
  Company Number: US-BRISTOL-MYERS SQUIBB COMPANY-14478762

PATIENT
  Age: 56 Year
  Sex: Male
  Weight: 155 kg

DRUGS (3)
  1. GLUCOPHAGE [Suspect]
     Indication: DIABETES MELLITUS
  2. PRILOSEC [Concomitant]
  3. NORVASC [Concomitant]

REACTIONS (1)
  - DYSGEUSIA [None]
